FAERS Safety Report 16346669 (Version 1)
Quarter: 2019Q2

REPORT INFORMATION
  Report Type: Spontaneous
  Country: US (occurrence: US)
  Receive Date: 20190523
  Receipt Date: 20190523
  Transmission Date: 20190711
  Serious: Yes (Hospitalization)
  Sender: FDA-Public Use
  Company Number: US-LUNDBECK-DKLU2078763

PATIENT
  Sex: Female

DRUGS (1)
  1. NORTHERA [Suspect]
     Active Substance: DROXIDOPA
     Indication: DIZZINESS
     Route: 048
     Dates: start: 20190103

REACTIONS (2)
  - Dehydration [Unknown]
  - Pneumonia [Unknown]
